FAERS Safety Report 10243346 (Version 1)
Quarter: 2014Q2

REPORT INFORMATION
  Report Type: Spontaneous
  Country: IT (occurrence: IT)
  Receive Date: 20140618
  Receipt Date: 20140618
  Transmission Date: 20141212
  Serious: Yes (Hospitalization)
  Sender: FDA-Public Use
  Company Number: PHHY2014IT074357

PATIENT
  Age: 61 Year
  Sex: Male

DRUGS (2)
  1. ZOMETA [Suspect]
     Indication: PROSTATE CANCER
     Dosage: 5 MG, CYCLIC
     Route: 042
     Dates: start: 20110901, end: 20130630
  2. DECAPEPTYL                              /SCH/ [Concomitant]
     Dosage: 11.25 MG, UNK
     Route: 042
     Dates: start: 20110901, end: 20140331

REACTIONS (1)
  - Osteonecrosis of jaw [Recovering/Resolving]
